FAERS Safety Report 10780138 (Version 1)
Quarter: 2015Q1

REPORT INFORMATION
  Report Type: Spontaneous
  Country: DK (occurrence: DK)
  Receive Date: 20150210
  Receipt Date: 20150210
  Transmission Date: 20150721
  Serious: Yes (Hospitalization)
  Sender: FDA-Public Use
  Company Number: PHHY2011DK102357

PATIENT
  Age: 61 Year
  Sex: Male
  Weight: 52 kg

DRUGS (17)
  1. PREDNISONE. [Suspect]
     Active Substance: PREDNISONE
     Dosage: 100 MG, UNK
     Route: 048
     Dates: start: 20110803
  2. CYCLOPHOSPHAMIDE. [Suspect]
     Active Substance: CYCLOPHOSPHAMIDE
     Indication: DIFFUSE LARGE B-CELL LYMPHOMA
     Dosage: 1275 MG, UNK
     Route: 042
     Dates: start: 20110718
  3. VINCRISTINE [Suspect]
     Active Substance: VINCRISTINE
     Dosage: 2 MG, UNK
     Route: 042
     Dates: start: 20110818, end: 20140818
  4. DOXORUBICIN [Suspect]
     Active Substance: DOXORUBICIN
     Dosage: 85 MG, UNK
     Route: 042
     Dates: start: 20110818, end: 20110818
  5. PREDNISONE. [Suspect]
     Active Substance: PREDNISONE
     Dosage: 100 MG/DL, UNK
     Dates: start: 20110818, end: 20110822
  6. CYCLOPHOSPHAMIDE. [Suspect]
     Active Substance: CYCLOPHOSPHAMIDE
     Dosage: 1275 MG, UNK
     Route: 042
     Dates: start: 20110803
  7. NEUPOGEN [Suspect]
     Active Substance: FILGRASTIM
     Dosage: 6 MG, UNK
     Route: 058
     Dates: start: 20110819, end: 20110819
  8. VINCRISTINE [Suspect]
     Active Substance: VINCRISTINE
     Indication: DIFFUSE LARGE B-CELL LYMPHOMA
     Dosage: 2 MG, UNK
     Route: 042
     Dates: start: 20110403
  9. RITUXIMAB [Suspect]
     Active Substance: RITUXIMAB
     Dosage: 650 UNK, UNK
     Dates: start: 20110803
  10. CYCLOPHOSPHAMIDE. [Suspect]
     Active Substance: CYCLOPHOSPHAMIDE
     Dosage: 1275 MG, UNK
     Route: 042
     Dates: start: 20110818, end: 20110818
  11. VINCRISTINE [Suspect]
     Active Substance: VINCRISTINE
     Dosage: 2 MG, UNK
     Route: 042
     Dates: start: 20110718
  12. DOXORUBICIN [Suspect]
     Active Substance: DOXORUBICIN
     Indication: DIFFUSE LARGE B-CELL LYMPHOMA
     Dosage: 85 MG, UNK
     Route: 042
     Dates: start: 20110718
  13. DOXORUBICIN [Suspect]
     Active Substance: DOXORUBICIN
     Dosage: 85 MG, UNK
     Route: 042
     Dates: start: 20110803
  14. PREDNISONE. [Suspect]
     Active Substance: PREDNISONE
     Indication: DIFFUSE LARGE B-CELL LYMPHOMA
     Dosage: 100 MG, UNK
     Route: 048
     Dates: start: 20110718
  15. NEUPOGEN [Suspect]
     Active Substance: FILGRASTIM
     Indication: DIFFUSE LARGE B-CELL LYMPHOMA
     Dosage: 6 MG, UNK
     Route: 058
     Dates: start: 20110720, end: 20110819
  16. RITUXIMAB [Suspect]
     Active Substance: RITUXIMAB
     Indication: DIFFUSE LARGE B-CELL LYMPHOMA
     Dosage: 650 MG, UNK
     Route: 042
     Dates: start: 20110718
  17. RITUXIMAB [Suspect]
     Active Substance: RITUXIMAB
     Dosage: 650 MG
     Route: 042
     Dates: start: 20110818, end: 20110818

REACTIONS (9)
  - Stomatitis [Recovered/Resolved]
  - Diarrhoea [Recovered/Resolved]
  - Hypomagnesaemia [Unknown]
  - Hypokalaemia [Unknown]
  - Febrile neutropenia [Recovered/Resolved]
  - Candida infection [Unknown]
  - Weight decreased [Recovered/Resolved]
  - Pyrexia [Unknown]
  - Malaise [Unknown]

NARRATIVE: CASE EVENT DATE: 20110719
